FAERS Safety Report 8317309-1 (Version None)
Quarter: 2012Q2

REPORT INFORMATION
  Report Type: 
  Country: None (occurrence: None)
  Receive Date: 20120427
  Receipt Date: 20120416
  Transmission Date: 20120825
  Serious: Yes (Other)
  Sender: FDA-Public Use
  Company Number: US-JNJFOC-20110612082

PATIENT
  Sex: Female
  Weight: 72.58 kg

DRUGS (7)
  1. REMICADE [Suspect]
     Route: 042
     Dates: start: 19990101, end: 20010101
  2. AZULFIDINE [Concomitant]
     Indication: RHEUMATOID ARTHRITIS
     Dates: start: 20110201
  3. VOLTAREN [Concomitant]
     Indication: RHEUMATOID ARTHRITIS
     Route: 065
  4. LEVOTHYROXINE SODIUM [Concomitant]
     Indication: HYPOTHYROIDISM
     Route: 048
     Dates: start: 20100101
  5. REMICADE [Suspect]
     Indication: RHEUMATOID ARTHRITIS
     Route: 042
     Dates: start: 20110617
  6. METHOTREXATE [Concomitant]
     Indication: RHEUMATOID ARTHRITIS
     Dates: start: 19970101, end: 20110201
  7. REMICADE [Suspect]
     Route: 042
     Dates: start: 20110701

REACTIONS (11)
  - CHILLS [None]
  - RASH [None]
  - FEELING COLD [None]
  - HYPOTHYROIDISM [None]
  - PAIN IN EXTREMITY [None]
  - INFLUENZA LIKE ILLNESS [None]
  - INFUSION RELATED REACTION [None]
  - HEADACHE [None]
  - MYALGIA [None]
  - PYREXIA [None]
  - MUSCLE SPASMS [None]
